FAERS Safety Report 5811170-2 (Version None)
Quarter: 2008Q3

REPORT INFORMATION
  Report Type: 
  Country: None (occurrence: None)
  Receive Date: 20080716
  Receipt Date: 20080707
  Transmission Date: 20090109
  Serious: Yes (Other)
  Sender: FDA-Public Use
  Company Number: FR-JNJFOC-20080605245

PATIENT
  Age: 6 Decade
  Sex: Female
  Weight: 52 kg

DRUGS (4)
  1. DOXORUBICIN HCL [Suspect]
     Indication: OVARIAN CANCER
     Route: 042
  2. CARBOPLATIN [Concomitant]
     Indication: OVARIAN CANCER
     Route: 011
  3. BECILAN [Concomitant]
     Route: 048
  4. VOGALENE [Concomitant]
     Route: 048

REACTIONS (2)
  - ERYTHEMA [None]
  - SKIN BURNING SENSATION [None]
